FAERS Safety Report 6722022-8 (Version None)
Quarter: 2010Q2

REPORT INFORMATION
  Report Type: 
  Country: None (occurrence: None)
  Receive Date: 20100512
  Receipt Date: 20100503
  Transmission Date: 20101027
  Serious: Yes (Other)
  Sender: FDA-Public Use
  Company Number: US-JNJFOC-20100404027

PATIENT
  Sex: Male
  Weight: 108.86 kg

DRUGS (1)
  1. REMICADE [Suspect]
     Indication: CROHN'S DISEASE
     Route: 042

REACTIONS (1)
  - POLYP [None]
